FAERS Safety Report 14085136 (Version 2)
Quarter: 2017Q4

REPORT INFORMATION
  Report Type: Spontaneous
  Country: DE (occurrence: DE)
  Receive Date: 20171013
  Receipt Date: 20171113
  Transmission Date: 20180321
  Serious: Yes (Other)
  Sender: FDA-Public Use
  Company Number: DE-UCBSA-2017040214

PATIENT
  Age: 12 Year
  Sex: Female
  Weight: 38 kg

DRUGS (4)
  1. VIMPAT [Suspect]
     Active Substance: LACOSAMIDE
     Dosage: 150 MG, 2X/DAY (BID)
     Route: 048
  2. VALPROATE [Concomitant]
     Active Substance: VALPROIC ACID
     Indication: EPILEPSY
     Dosage: 600 MG, 2X/DAY (BID)
     Route: 048
  3. LAMICTAL [Concomitant]
     Active Substance: LAMOTRIGINE
     Indication: EPILEPSY
     Dosage: 25 MG, 2X/DAY (BID)
     Route: 048
  4. VIMPAT [Suspect]
     Active Substance: LACOSAMIDE
     Indication: EPILEPSY
     Dosage: UNK
     Route: 048

REACTIONS (5)
  - Myoclonic epilepsy [Unknown]
  - Crying [Unknown]
  - Nightmare [Not Recovered/Not Resolved]
  - Off label use [Unknown]
  - Anxiety [Not Recovered/Not Resolved]

NARRATIVE: CASE EVENT DATE: 20170914
